FAERS Safety Report 22051915 (Version 1)
Quarter: 2023Q1

REPORT INFORMATION
  Report Type: Report from Study
  Country: CO (occurrence: CO)
  Receive Date: 20230302
  Receipt Date: 20230302
  Transmission Date: 20230418
  Serious: Yes (Other)
  Sender: FDA-Public Use
  Company Number: CO-ABBVIE-4323780

PATIENT
  Sex: Female
  Weight: 60 kg

DRUGS (6)
  1. HUMIRA [Suspect]
     Active Substance: ADALIMUMAB
     Indication: Psoriasis
     Route: 058
  2. HUMIRA [Suspect]
     Active Substance: ADALIMUMAB
  3. ESOMEPRAZOLE [Concomitant]
     Active Substance: ESOMEPRAZOLE
     Indication: Gastrooesophageal reflux disease
     Route: 048
  4. PROGESTERONE [Concomitant]
     Active Substance: PROGESTERONE
     Indication: Menopausal symptoms
     Route: 048
     Dates: start: 2017
  5. Biocalcium [Concomitant]
     Indication: Product used for unknown indication
     Dosage: 1 DOSAGE FORMS
     Route: 048
  6. PSYLLIUM [Concomitant]
     Active Substance: PLANTAGO SEED
     Indication: Constipation
     Route: 048
     Dates: start: 2021

REACTIONS (7)
  - Cholelithiasis [Recovering/Resolving]
  - Menopausal symptoms [Recovering/Resolving]
  - Hepatic steatosis [Not Recovered/Not Resolved]
  - Acne [Recovering/Resolving]
  - Gallbladder polyp [Recovering/Resolving]
  - Arthritis [Recovering/Resolving]
  - Hepatitis [Not Recovered/Not Resolved]

NARRATIVE: CASE EVENT DATE: 20170101
